FAERS Safety Report 7584171-4 (Version None)
Quarter: 2011Q2

REPORT INFORMATION
  Report Type: 
  Country: None (occurrence: None)
  Receive Date: 20110630
  Receipt Date: 20110624
  Transmission Date: 20111010
  Serious: Yes (Disabling)
  Sender: FDA-Public Use
  Company Number: JP-B.I. PHARMACEUTICALS,INC./RIDGEFIELD-2011-BP-15536NB

PATIENT
  Age: 57 Year
  Sex: Male

DRUGS (4)
  1. PRADAXA [Suspect]
     Indication: ATRIAL FIBRILLATION
     Dosage: 300 MG
     Route: 048
     Dates: start: 20110601, end: 20110614
  2. DIGOXIN [Concomitant]
     Route: 065
  3. CIBENOL [Concomitant]
     Route: 065
  4. VERAPAMIL HCL [Concomitant]
     Route: 065

REACTIONS (1)
  - OESOPHAGEAL ULCER [None]
